FAERS Safety Report 19675737 (Version 1)
Quarter: 2021Q3

REPORT INFORMATION
  Report Type: Spontaneous
  Country: IE (occurrence: IE)
  Receive Date: 20210809
  Receipt Date: 20210809
  Transmission Date: 20211014
  Serious: Yes (Other)
  Sender: FDA-Public Use
  Company Number: IE-TEVA-2021-IE-1939466

PATIENT
  Age: 75 Year
  Sex: Female
  Weight: 57.2 kg

DRUGS (5)
  1. PANTOPRAZOLE [Suspect]
     Active Substance: PANTOPRAZOLE
     Dosage: 40MG:PANTOPRAZOLE SODIUM SESQUIHYDRATE,
  2. ATENOLOL. [Suspect]
     Active Substance: ATENOLOL
     Dosage: 25MG
  3. COMIRNATY [Suspect]
     Active Substance: TOZINAMERAN
     Dosage: SECOND DOSE
     Dates: start: 20210421
  4. COMIRNATY [Suspect]
     Active Substance: TOZINAMERAN
     Indication: COVID-19 IMMUNISATION
     Dosage: FIRST DOSE:CONCENTRATE FOR DISPERSION FOR INJECTION
     Dates: start: 20210310
  5. VALOID [Suspect]
     Active Substance: CYCLIZINE
     Dosage: 50 MGDRUG ? INDICATION OF USE:SUBTANCE NAME : CYCLIZINE HYDROCHLORIDE ,

REACTIONS (3)
  - Rash [Not Recovered/Not Resolved]
  - Pain [Not Recovered/Not Resolved]
  - Discomfort [Not Recovered/Not Resolved]

NARRATIVE: CASE EVENT DATE: 20210405
